FAERS Safety Report 9641241 (Version 4)
Quarter: 2013Q4

REPORT INFORMATION
  Report Type: Spontaneous
  Country: VE (occurrence: VE)
  Receive Date: 20131023
  Receipt Date: 20131226
  Transmission Date: 20140711
  Serious: Yes (Death, Other)
  Sender: FDA-Public Use
  Company Number: VE-AMGEN-VENSP2013074720

PATIENT
  Age: 81 Year
  Sex: Male

DRUGS (1)
  1. ENBREL [Suspect]
     Indication: PSORIASIS
     Dosage: UNK, TWO TIMES A WEEK
     Route: 058
     Dates: start: 2007, end: 2011

REACTIONS (5)
  - Respiratory arrest [Fatal]
  - Dementia Alzheimer^s type [Not Recovered/Not Resolved]
  - Plasma cell myeloma [Not Recovered/Not Resolved]
  - Bone cancer [Not Recovered/Not Resolved]
  - Renal disorder [Not Recovered/Not Resolved]
